FAERS Safety Report 12540905 (Version 3)
Quarter: 2017Q1

REPORT INFORMATION
  Report Type: Report from Study
  Country: BR (occurrence: BR)
  Receive Date: 20160708
  Receipt Date: 20170118
  Transmission Date: 20170428
  Serious: Yes (Other)
  Sender: FDA-Public Use
  Company Number: BR-ROCHE-1161805

PATIENT
  Age: 70 Year
  Sex: Male
  Weight: 79 kg

DRUGS (59)
  1. RITUXIMAB [Suspect]
     Active Substance: RITUXIMAB
     Indication: NON-HODGKIN^S LYMPHOMA UNSPECIFIED HISTOLOGY INDOLENT
     Dosage: DATE OF LAST DOSE PRIOR TO SAE: 26/NOV/2012.
     Route: 042
  2. BACTRIM [Concomitant]
     Active Substance: SULFAMETHOXAZOLE\TRIMETHOPRIM
     Route: 048
     Dates: start: 20120301
  3. BACTRIM [Concomitant]
     Active Substance: SULFAMETHOXAZOLE\TRIMETHOPRIM
     Dosage: 1 TABLET.
     Route: 065
     Dates: start: 20150319, end: 20150319
  4. PARACETAMOL [Concomitant]
     Active Substance: ACETAMINOPHEN
     Route: 065
     Dates: start: 20130122, end: 20150121
  5. CEPHALEXIN. [Concomitant]
     Active Substance: CEPHALEXIN
     Indication: FOLLICULITIS
     Route: 065
     Dates: start: 20140114, end: 20140121
  6. BUSCOPAN COMPOSTO [Concomitant]
     Active Substance: BUTYLSCOPOLAMINE BROMIDE\METAMIZOLE SODIUM
     Route: 065
     Dates: start: 20140710, end: 20140710
  7. NUBAIN [Concomitant]
     Active Substance: NALBUPHINE HYDROCHLORIDE
     Route: 065
     Dates: start: 20141213, end: 20141213
  8. FLEBOCORTID [Concomitant]
     Active Substance: HYDROCORTISONE SODIUM SUCCINATE
     Indication: PNEUMONIA
     Route: 065
     Dates: start: 20150319, end: 20150410
  9. CLEXANE [Concomitant]
     Active Substance: ENOXAPARIN SODIUM
  10. PANTOPRAZOL [Concomitant]
     Active Substance: PANTOPRAZOLE SODIUM
     Route: 065
     Dates: start: 20141212, end: 20141214
  11. GRANULOKINE [Concomitant]
     Active Substance: FILGRASTIM
     Route: 065
     Dates: start: 20130428, end: 20130430
  12. BUSCOPAN COMPOSTO [Concomitant]
     Active Substance: BUTYLSCOPOLAMINE BROMIDE\METAMIZOLE SODIUM
     Indication: PANCREATITIS ACUTE
     Route: 065
     Dates: start: 20141207, end: 20141207
  13. ONDANSETRON [Concomitant]
     Active Substance: ONDANSETRON
     Route: 065
     Dates: start: 20121126, end: 20130419
  14. FILGRASTIM [Concomitant]
     Active Substance: FILGRASTIM
     Route: 065
     Dates: start: 20130204, end: 20130206
  15. FILGRASTIM [Concomitant]
     Active Substance: FILGRASTIM
     Route: 065
     Dates: start: 20140311, end: 20140313
  16. CEFEPIME [Concomitant]
     Active Substance: CEFEPIME HYDROCHLORIDE
     Indication: FEBRILE NEUTROPENIA
     Route: 065
     Dates: start: 20140310, end: 20140313
  17. BUSCOPAN [Concomitant]
     Active Substance: BUTYLSCOPOLAMINE BROMIDE
     Indication: BILIARY COLIC
     Dosage: 1 AMP.
     Route: 065
     Dates: start: 20140710, end: 20140710
  18. TRAMAL [Concomitant]
     Active Substance: TRAMADOL
     Indication: PANCREATITIS ACUTE
     Route: 065
     Dates: start: 20141207, end: 20141207
  19. DIPIRONA [Concomitant]
     Active Substance: METAMIZOLE
     Route: 065
     Dates: start: 20141208, end: 20141208
  20. ZOFRAN [Concomitant]
     Active Substance: ONDANSETRON HYDROCHLORIDE
     Route: 065
     Dates: start: 20141214, end: 20141214
  21. DEXCHLORPHENIRAMINE [Concomitant]
     Active Substance: DEXCHLORPHENIRAMINE
     Route: 065
     Dates: start: 20130523
  22. PARACETAMOL [Concomitant]
     Active Substance: ACETAMINOPHEN
     Route: 065
     Dates: start: 20121126, end: 20121226
  23. KEFAZOL [Concomitant]
     Active Substance: CEFAZOLIN SODIUM
     Route: 065
     Dates: start: 20141214, end: 20141214
  24. FILGRASTIM [Concomitant]
     Active Substance: FILGRASTIM
     Route: 065
     Dates: start: 20130426, end: 20130430
  25. AZITHROMYCIN ANHYDROUS. [Concomitant]
     Active Substance: AZITHROMYCIN ANHYDROUS
     Indication: BRONCHITIS
     Route: 065
     Dates: start: 20140124, end: 20140130
  26. GRANULOKINE [Concomitant]
     Active Substance: FILGRASTIM
     Indication: FEBRILE NEUTROPENIA
     Route: 065
     Dates: start: 20150319, end: 20150324
  27. DIPIRONA [Concomitant]
     Active Substance: METAMIZOLE
     Route: 065
     Dates: start: 20141211, end: 20141211
  28. DIPIRONA [Concomitant]
     Active Substance: METAMIZOLE
     Route: 065
     Dates: start: 20141212, end: 20141212
  29. DIPIRONA [Concomitant]
     Active Substance: METAMIZOLE
     Route: 065
     Dates: start: 20141214, end: 20141214
  30. TAZOCIN [Concomitant]
     Active Substance: PIPERACILLIN SODIUM\TAZOBACTAM SODIUM
     Route: 065
     Dates: start: 20150322, end: 20150322
  31. TARGOCID [Concomitant]
     Active Substance: TEICOPLANIN
     Indication: PNEUMONIA
     Route: 065
     Dates: start: 20150325, end: 20150414
  32. AMBISOME [Concomitant]
     Active Substance: AMPHOTERICIN B
     Indication: PNEUMONIA
     Route: 065
     Dates: start: 20150404, end: 20150417
  33. DEXAMETHASONE. [Concomitant]
     Active Substance: DEXAMETHASONE
     Route: 065
     Dates: start: 20130820, end: 20150121
  34. KEFAZOL [Concomitant]
     Active Substance: CEFAZOLIN SODIUM
     Route: 065
     Dates: start: 20141212, end: 20141212
  35. TAZOCIN [Concomitant]
     Active Substance: PIPERACILLIN SODIUM\TAZOBACTAM SODIUM
     Route: 065
     Dates: start: 20150323
  36. VANCOMICINA [Concomitant]
     Active Substance: VANCOMYCIN
     Indication: PNEUMONIA
     Route: 065
     Dates: start: 20150321, end: 20150323
  37. MERONEM [Concomitant]
     Active Substance: MEROPENEM
     Indication: PNEUMONIA
     Route: 065
     Dates: start: 20150326, end: 20150422
  38. ATENOLOL. [Concomitant]
     Active Substance: ATENOLOL
     Indication: HYPERTENSION
     Route: 065
     Dates: start: 20090101
  39. LIQUEMINE [Concomitant]
     Active Substance: HEPARIN SODIUM
     Route: 065
     Dates: start: 20141215, end: 20141215
  40. FILGRASTIM [Concomitant]
     Active Substance: FILGRASTIM
     Indication: NEUTROPENIA
     Route: 065
     Dates: start: 20130107, end: 20130110
  41. NIMESULIDE [Concomitant]
     Active Substance: NIMESULIDE
     Route: 065
     Dates: start: 20130408, end: 20130408
  42. ACYCLOVIR. [Concomitant]
     Active Substance: ACYCLOVIR
     Route: 065
     Dates: start: 20130104, end: 20140206
  43. ALLOPURINOL. [Concomitant]
     Active Substance: ALLOPURINOL
     Route: 065
     Dates: start: 20120301, end: 20130619
  44. PANTOPRAZOL [Concomitant]
     Active Substance: PANTOPRAZOLE SODIUM
     Route: 065
     Dates: start: 20141207, end: 20141207
  45. LIQUEMINE [Concomitant]
     Active Substance: HEPARIN SODIUM
     Route: 065
     Dates: start: 20141212, end: 20141214
  46. FILGRASTIM [Concomitant]
     Active Substance: FILGRASTIM
     Route: 065
     Dates: start: 20130131, end: 20130201
  47. FILGRASTIM [Concomitant]
     Active Substance: FILGRASTIM
     Route: 065
     Dates: start: 20130228, end: 20130304
  48. DIPIRONA [Concomitant]
     Active Substance: METAMIZOLE
     Indication: PANCREATITIS ACUTE
     Route: 065
     Dates: start: 20141210, end: 20141210
  49. TAZOCIN [Concomitant]
     Active Substance: PIPERACILLIN SODIUM\TAZOBACTAM SODIUM
     Indication: PNEUMONIA
     Route: 065
     Dates: start: 20150319, end: 20150321
  50. OMEPRAZOLE. [Concomitant]
     Active Substance: OMEPRAZOLE
     Route: 065
     Dates: start: 20120301, end: 20140206
  51. PANTOPRAZOL [Concomitant]
     Active Substance: PANTOPRAZOLE SODIUM
     Route: 065
     Dates: start: 20141208, end: 20141210
  52. KEFAZOL [Concomitant]
     Active Substance: CEFAZOLIN SODIUM
     Route: 065
     Dates: start: 20141213, end: 20141213
  53. FILGRASTIM [Concomitant]
     Active Substance: FILGRASTIM
     Route: 065
     Dates: start: 20130328, end: 20130401
  54. NUBAIN [Concomitant]
     Active Substance: NALBUPHINE HYDROCHLORIDE
     Indication: PANCREATITIS ACUTE
     Route: 065
     Dates: start: 20141212, end: 20141212
  55. NUBAIN [Concomitant]
     Active Substance: NALBUPHINE HYDROCHLORIDE
     Route: 065
     Dates: start: 20141214, end: 20141214
  56. ZOFRAN [Concomitant]
     Active Substance: ONDANSETRON HYDROCHLORIDE
     Indication: PANCREATITIS ACUTE
     Route: 065
     Dates: start: 20141212, end: 20141213
  57. CEFTRIAXONE. [Concomitant]
     Active Substance: CEFTRIAXONE
     Indication: PNEUMONIA
     Route: 065
     Dates: start: 20150319, end: 20150321
  58. CLINDAMICIN [Concomitant]
     Active Substance: CLINDAMYCIN
     Indication: PNEUMONIA
     Route: 065
     Dates: start: 20150320, end: 20150321
  59. ACETYLSALICYLIC ACID [Concomitant]
     Active Substance: ASPIRIN
     Route: 065
     Dates: start: 20120401, end: 20121112

REACTIONS (1)
  - Drug hypersensitivity [Recovered/Resolved]

NARRATIVE: CASE EVENT DATE: 20121126
